FAERS Safety Report 26080242 (Version 2)
Quarter: 2025Q4

REPORT INFORMATION
  Report Type: Report from Study
  Country: CA (occurrence: CA)
  Receive Date: 20251124
  Receipt Date: 20251203
  Transmission Date: 20260118
  Serious: Yes (Hospitalization, Disabling)
  Sender: CELLTRION
  Company Number: CA-CELLTRION INC.-2025CA008074

PATIENT

DRUGS (3)
  1. ADALIMUMAB-AATY [Suspect]
     Active Substance: ADALIMUMAB-AATY
     Indication: Rheumatoid arthritis
     Dosage: 40MG SC EVERY 2 WEEKS/1 EVERY 2 WEEKS
     Route: 058
     Dates: start: 20241121
  2. ADALIMUMAB-AATY [Suspect]
     Active Substance: ADALIMUMAB-AATY
     Dosage: 40 MG EVERY 2 WEEKS/1 EVERY 2 WEEKS
     Route: 058
     Dates: start: 20250606
  3. ADALIMUMAB-AATY [Suspect]
     Active Substance: ADALIMUMAB-AATY
     Dosage: 40 MG EVERY 2 WEEKS/1 EVERY 2 WEEKS
     Route: 058
     Dates: start: 20250619

REACTIONS (13)
  - Fall [Unknown]
  - Confusional state [Unknown]
  - Diarrhoea [Unknown]
  - Cystitis [Unknown]
  - Limb discomfort [Unknown]
  - Limb discomfort [Unknown]
  - Musculoskeletal discomfort [Unknown]
  - Discomfort [Unknown]
  - Arthralgia [Unknown]
  - Pain [Unknown]
  - Inappropriate schedule of product administration [Unknown]
  - Drug ineffective [Unknown]
  - Therapeutic product effect decreased [Unknown]
